FAERS Safety Report 6437137-1 (Version None)
Quarter: 2009Q4

REPORT INFORMATION
  Report Type: 
  Country: None (occurrence: None)
  Receive Date: 20091112
  Receipt Date: 20091104
  Transmission Date: 20100525
  Serious: Yes (Other)
  Sender: FDA-Public Use
  Company Number: US-ASTRAZENECA-2009SE24598

PATIENT
  Age: 58 Year
  Sex: Female

DRUGS (4)
  1. SEROQUEL XR [Suspect]
     Route: 048
  2. LITHIUM [Concomitant]
  3. WELLBUTRIN [Concomitant]
  4. VIVANSE [Concomitant]

REACTIONS (2)
  - HEPATIC ENZYME INCREASED [None]
  - OVARIAN LOW MALIGNANT POTENTIAL TUMOUR [None]
